FAERS Safety Report 4781443-3 (Version None)
Quarter: 2005Q3

REPORT INFORMATION
  Report Type: 
  Country: None (occurrence: None)
  Receive Date: 20050928
  Receipt Date: 20050825
  Transmission Date: 20060218
  Serious: Yes (Other)
  Sender: FDA-Public Use
  Company Number: PHBS2005JP12436

PATIENT
  Age: 33 Year
  Sex: Male
  Weight: 90 kg

DRUGS (3)
  1. SANDIMMUNE [Suspect]
     Indication: PSORIASIS
     Dosage: 200 MG - 250 MG/DAY
     Route: 048
     Dates: start: 20000306
  2. FULMETA [Concomitant]
     Dosage: 1 G/D
     Route: 061
     Dates: start: 19980603, end: 20050901
  3. RINDERON-VG [Concomitant]
     Dosage: 2 ML/D
     Route: 048
     Dates: start: 19980501, end: 20050817

REACTIONS (7)
  - ALANINE AMINOTRANSFERASE INCREASED [None]
  - ASPARTATE AMINOTRANSFERASE INCREASED [None]
  - BLOOD BILIRUBIN INCREASED [None]
  - BLOOD SODIUM DECREASED [None]
  - GAMMA-GLUTAMYLTRANSFERASE INCREASED [None]
  - LIVER FUNCTION TEST ABNORMAL [None]
  - TRANSMISSION OF DRUG VIA SEMEN [None]
